FAERS Safety Report 25444836 (Version 6)
Quarter: 2025Q3

REPORT INFORMATION
  Report Type: Spontaneous
  Country: JP (occurrence: JP)
  Receive Date: 20250617
  Receipt Date: 20250826
  Transmission Date: 20251021
  Serious: Yes (Other)
  Sender: ABBVIE
  Company Number: JP-ABBVIE-6325160

PATIENT
  Age: 61 Year
  Sex: Male
  Weight: 80 kg

DRUGS (8)
  1. HUMIRA [Suspect]
     Active Substance: ADALIMUMAB
     Indication: Psoriasis
     Dosage: FORM STRENGTH: 40 MILLIGRAM,
     Route: 058
     Dates: start: 20120531, end: 20240501
  2. SKYRIZI [Suspect]
     Active Substance: RISANKIZUMAB-RZAA
     Indication: Psoriasis
     Route: 058
     Dates: start: 20240515, end: 20250312
  3. FEXOFENADINE HYDROCHLORIDE [Concomitant]
     Active Substance: FEXOFENADINE HYDROCHLORIDE
     Indication: Product used for unknown indication
     Route: 048
  4. MAXACALCITOL [Concomitant]
     Active Substance: MAXACALCITOL
     Indication: Psoriasis
     Dosage: FORM STRENGTH: 0.0025 PERCENT
     Route: 061
     Dates: start: 20130202
  5. EPINASTINE HYDROCHLORIDE [Concomitant]
     Active Substance: EPINASTINE HYDROCHLORIDE
     Indication: Psoriasis
     Dosage: FORM STRENGTH: 20 MILLIGRAM
     Route: 048
     Dates: start: 20130202
  6. FLUOCINONIDE [Concomitant]
     Active Substance: FLUOCINONIDE
     Indication: Product used for unknown indication
     Dosage: FORM STRENGTH: 0.05 PERCENT
     Route: 061
     Dates: start: 20131108
  7. PREDNISOLONE VALERATE ACETATE [Concomitant]
     Active Substance: PREDNISOLONE VALERATE ACETATE
     Indication: Skin disorder
     Dosage: FORM STRENGTH: 0.3 PERCENT
     Route: 061
     Dates: start: 20240515
  8. Topsym [Concomitant]
     Indication: Skin disorder
     Dosage: FORM STRENGTH: 0.05 PERCENT
     Route: 061
     Dates: start: 20240911

REACTIONS (3)
  - Gastric cancer [Not Recovered/Not Resolved]
  - Viral hepatitis carrier [Unknown]
  - KL-6 increased [Recovered/Resolved]

NARRATIVE: CASE EVENT DATE: 20230614
